FAERS Safety Report 8771167 (Version 1)
Quarter: 2012Q4

REPORT INFORMATION
  Report Type: 
  Country: IN (occurrence: IN)
  Receive Date: 20120903
  Receipt Date: 20120903
  Transmission Date: 20130627
  Serious: Yes (Other)
  Sender: FDA-Public Use
  Company Number: IN-PFIZER INC-2012215298

PATIENT
  Age: 64 Year
  Sex: Male

DRUGS (2)
  1. SERTRALINE HCL [Suspect]
     Indication: PSEUDODEMENTIA
     Dosage: 25 mg per day
  2. SERTRALINE HCL [Suspect]
     Dosage: 50 mg per day

REACTIONS (2)
  - Grand mal convulsion [Recovering/Resolving]
  - Hyponatraemia [Recovering/Resolving]
